FAERS Safety Report 9368922 (Version 2)
Quarter: 2013Q3

REPORT INFORMATION
  Report Type: Spontaneous
  Country: ES (occurrence: None)
  Receive Date: 20130621
  Receipt Date: 20130705
  Transmission Date: 20140515
  Serious: Yes (Hospitalization)
  Sender: FDA-Public Use
  Company Number: IPC201306-000229

PATIENT
  Age: 73 Year
  Sex: Male

DRUGS (2)
  1. ALLOPURINOL [Suspect]
     Indication: HYPERURICAEMIA
  2. AZATHIOPRINE [Suspect]

REACTIONS (5)
  - Drug interaction [None]
  - Bone marrow failure [None]
  - Anaemia [None]
  - Leukopenia [None]
  - Bone marrow toxicity [None]
